FAERS Safety Report 9521538 (Version 1)
Quarter: 2013Q3

REPORT INFORMATION
  Report Type: Report from Study
  Country: US (occurrence: US)
  Receive Date: 20130913
  Receipt Date: 20130913
  Transmission Date: 20140515
  Serious: Yes (Other)
  Sender: FDA-Public Use
  Company Number: US-NAPPMUNDI-USA-2013-0106265

PATIENT
  Age: 50 Year
  Sex: Female

DRUGS (1)
  1. OXYCONTIN (NDA 22-272) [Suspect]
     Indication: BACK PAIN
     Dosage: 80 MG, Q12H
     Route: 048

REACTIONS (3)
  - Foot fracture [Unknown]
  - Fall [Recovered/Resolved]
  - Back pain [Not Recovered/Not Resolved]
